FAERS Safety Report 21824808 (Version 1)
Quarter: 2023Q1

REPORT INFORMATION
  Report Type: Spontaneous
  Country: US (occurrence: US)
  Receive Date: 20230105
  Receipt Date: 20230105
  Transmission Date: 20230417
  Serious: No
  Sender: FDA-Public Use
  Company Number: US-MEDIMETRIKS-2022-US-000543

PATIENT
  Sex: Male

DRUGS (2)
  1. CICLOPIROX OLAMINE [Suspect]
     Active Substance: CICLOPIROX OLAMINE
     Indication: Fungal infection
     Route: 065
  2. ENILCONAZOLE [Suspect]
     Active Substance: ENILCONAZOLE
     Route: 065

REACTIONS (1)
  - Drug ineffective [Unknown]
